FAERS Safety Report 6173212-7 (Version None)
Quarter: 2009Q2

REPORT INFORMATION
  Report Type: 
  Country: None (occurrence: None)
  Receive Date: 20090430
  Receipt Date: 20090421
  Transmission Date: 20091009
  Serious: Yes (Death)
  Sender: FDA-Public Use
  Company Number: CN-PFIZER INC-2009203478

PATIENT

DRUGS (6)
  1. CEFOPERAZONE SODIUM, SULBACTAM SODIUM [Suspect]
     Indication: UPPER RESPIRATORY TRACT INFECTION
     Route: 042
  2. CEFOPERAZONE SODIUM, SULBACTAM SODIUM [Suspect]
     Indication: TONSILLITIS
  3. PYRAMIDON [Concomitant]
  4. METRONIDAZOLE [Concomitant]
     Route: 042
  5. RIBAVIRIN [Concomitant]
     Route: 042
  6. AMIKACIN [Concomitant]
     Route: 042

REACTIONS (5)
  - CHEST DISCOMFORT [None]
  - CHEST PAIN [None]
  - COMA [None]
  - CYANOSIS [None]
  - MUSCLE SPASMS [None]
